FAERS Safety Report 4484346-7 (Version None)
Quarter: 2004Q4

REPORT INFORMATION
  Report Type: 
  Country: None (occurrence: None)
  Receive Date: 20041025
  Receipt Date: 20040924
  Transmission Date: 20050328
  Serious: Yes (Hospitalization)
  Sender: FDA-Public Use
  Company Number: US-BRISTOL-MYERS SQUIBB COMPANY-12712469

PATIENT
  Age: 58 Year
  Sex: Male

DRUGS (10)
  1. CARBOPLATIN [Suspect]
     Indication: TONSIL CANCER
     Dosage: AUC 2 OFF STUDY: 05OCT04
     Dates: start: 20040914, end: 20040914
  2. TAXOL [Suspect]
     Indication: TONSIL CANCER
     Dosage: OFF STUDY: 05OCT04
     Dates: start: 20040914, end: 20040914
  3. CELEBREX [Suspect]
     Indication: TONSIL CANCER
     Dosage: VIA PEG TUBE OFF STUDY: 05OCT04
     Route: 050
  4. GUAIFENESIN [Concomitant]
     Route: 048
  5. DURAGESIC [Concomitant]
     Route: 062
  6. COUMADIN [Concomitant]
  7. OXYCODONE [Concomitant]
     Dosage: 4-6 HOURS
     Route: 048
  8. ZOFRAN [Concomitant]
     Route: 048
  9. REGLAN [Concomitant]
     Route: 048
  10. ZANTAC [Concomitant]
     Route: 048

REACTIONS (3)
  - ILEUS [None]
  - MEDICAL DEVICE COMPLICATION [None]
  - VOMITING [None]
